FAERS Safety Report 7395356-4 (Version None)
Quarter: 2011Q2

REPORT INFORMATION
  Report Type: 
  Country: None (occurrence: None)
  Receive Date: 20110405
  Receipt Date: 20110309
  Transmission Date: 20111010
  Serious: No
  Sender: FDA-Public Use
  Company Number: US-B.I. PHARMACEUTICALS,INC./RIDGEFIELD-2011-BP-07528BP

PATIENT
  Age: 58 Year
  Sex: Female

DRUGS (7)
  1. NOVOLOG [Concomitant]
  2. PRADAXA [Suspect]
     Indication: MITRAL VALVE REPLACEMENT
     Dosage: 150 MG
     Route: 048
     Dates: start: 20110201
  3. LASIX [Concomitant]
  4. SINEMET [Concomitant]
  5. STEMENHANCE [Concomitant]
  6. ARICEPT [Concomitant]
     Indication: DEMENTIA
     Dosage: 10 MG
  7. POTASSIUM [Concomitant]

REACTIONS (2)
  - SOMNOLENCE [None]
  - LETHARGY [None]
